FAERS Safety Report 9325097 (Version 1)
Quarter: 2013Q2

REPORT INFORMATION
  Report Type: Spontaneous
  Country: US (occurrence: None)
  Receive Date: 20130529
  Receipt Date: 20130529
  Transmission Date: 20140414
  Serious: Yes (Death)
  Sender: FDA-Public Use
  Company Number: CABO-13002714

PATIENT
  Age: 68 Year
  Sex: Female
  Weight: 61 kg

DRUGS (9)
  1. COMETRIQ [Suspect]
     Indication: THYROID CANCER
     Route: 048
     Dates: start: 20130305, end: 20130305
  2. VITAMIN D (COLECALCIFEROL) [Concomitant]
  3. CITRACAL + D (CALCIUM CITRATE, ERGOCALCIFEROL) [Concomitant]
  4. CENTRUM SILVER (ASCORBIC ACID, CALCIUM, MINERALS NOS, RETINOL, TOCOPHERYL ACETATE TAMINS NOS, ZINC) [Concomitant]
  5. VITAMIN E [Suspect]
  6. VITAMIN D3 (COLECALCIFEROL) [Concomitant]
  7. POTASSIUM GLUCONATE (POTASSIUM GLUCONATE) [Concomitant]
  8. VIT B12 (CYANOCOBALAMIN) [Concomitant]
  9. SYNTHROID (LEVOTHYROXINE SODIUM) [Concomitant]

REACTIONS (4)
  - Death [None]
  - Nausea [None]
  - Diarrhoea [None]
  - Fatigue [None]
